FAERS Safety Report 10143087 (Version 4)
Quarter: 2018Q4

REPORT INFORMATION
  Report Type: Report from Study
  Country: CA (occurrence: CA)
  Receive Date: 20140430
  Receipt Date: 20181220
  Transmission Date: 20190204
  Serious: Yes (Other)
  Sender: FDA-Public Use
  Company Number: CA-ROCHE-1378646

PATIENT
  Sex: Male

DRUGS (9)
  1. DIPHENHYDRAMINE HCL [Concomitant]
     Active Substance: DIPHENHYDRAMINE HYDROCHLORIDE
     Indication: PREMEDICATION
     Route: 048
     Dates: start: 20110906
  2. METHOTREXATE. [Suspect]
     Active Substance: METHOTREXATE
     Indication: PRODUCT USED FOR UNKNOWN INDICATION
     Route: 065
     Dates: start: 201803
  3. NIFEDIPINE. [Concomitant]
     Active Substance: NIFEDIPINE
  4. FOLIC ACID. [Concomitant]
     Active Substance: FOLIC ACID
  5. RITUXAN [Suspect]
     Active Substance: RITUXIMAB
     Indication: RHEUMATOID ARTHRITIS
     Dosage: FREQUENCY: DAY 1 AND 15?LAST RITUXIMAB RECEIVED ON 27/JUN/2013
     Route: 042
     Dates: start: 20110906
  6. PREDNISONE. [Concomitant]
     Active Substance: PREDNISONE
  7. METHYLPREDNISOLONE. [Concomitant]
     Active Substance: METHYLPREDNISOLONE
     Indication: PREMEDICATION
     Route: 065
     Dates: start: 20110906
  8. CARBOCAL [Concomitant]
     Active Substance: CALCIUM CARBONATE
  9. ACETAMINOPHEN. [Concomitant]
     Active Substance: ACETAMINOPHEN
     Indication: PREMEDICATION
     Route: 048
     Dates: start: 20110906

REACTIONS (4)
  - Nodule [Unknown]
  - Rheumatoid arthritis [Unknown]
  - Prostate cancer [Unknown]
  - Gastrointestinal submucosal tumour [Unknown]

NARRATIVE: CASE EVENT DATE: 2012
